FAERS Safety Report 9450325 (Version 1)
Quarter: 2013Q3

REPORT INFORMATION
  Report Type: Spontaneous
  Country: IT (occurrence: FR)
  Receive Date: 20130809
  Receipt Date: 20130809
  Transmission Date: 20140515
  Serious: Yes (Death, Hospitalization)
  Sender: FDA-Public Use
  Company Number: FR-FRI-1000047560

PATIENT
  Age: 77 Year
  Sex: Male

DRUGS (5)
  1. NEBIVOLOL [Suspect]
     Dosage: 2.5 MG
     Route: 048
     Dates: start: 20130626
  2. PRADAXA [Suspect]
     Indication: ANTICOAGULANT THERAPY
     Dosage: 220 MG
     Route: 048
     Dates: start: 20130624
  3. CORDARONE [Suspect]
     Route: 048
     Dates: start: 20130621
  4. SOLUMEDROL [Concomitant]
     Indication: SECONDARY PROGRESSIVE MULTIPLE SCLEROSIS
     Dates: start: 20130711
  5. FAMPYRA [Concomitant]
     Dosage: 20 MG
     Route: 048
     Dates: start: 20130514, end: 20130703

REACTIONS (2)
  - Subdural haematoma [Fatal]
  - Cardio-respiratory arrest [Fatal]
